FAERS Safety Report 9957202 (Version 1)
Quarter: 2014Q1

REPORT INFORMATION
  Report Type: Spontaneous
  Country: US (occurrence: US)
  Receive Date: 20140304
  Receipt Date: 20140304
  Transmission Date: 20141002
  Serious: Yes (Other)
  Sender: FDA-Public Use
  Company Number: US-ABBVIE-13P-163-1100102-00

PATIENT
  Age: 65 Year
  Sex: Male

DRUGS (2)
  1. HUMIRA [Suspect]
     Indication: CROHN^S DISEASE
     Dates: end: 2011
  2. UNKNOWN STEROID [Concomitant]
     Indication: CROHN^S DISEASE

REACTIONS (5)
  - Crohn^s disease [Unknown]
  - Sinusitis [Unknown]
  - Papilloma viral infection [Unknown]
  - Genital lesion [Unknown]
  - Bronchiectasis [Unknown]
